FAERS Safety Report 8799675 (Version 1)
Quarter: 2012Q4

REPORT INFORMATION
  Report Type: Spontaneous
  Country: US (occurrence: None)
  Receive Date: 20120914
  Receipt Date: 20120914
  Transmission Date: 20130627
  Serious: Yes (Other)
  Sender: FDA-Public Use
  Company Number: DKLU1084477

PATIENT
  Age: 42 Year
  Sex: Male

DRUGS (2)
  1. ONFI [Suspect]
     Indication: ANXIETY
     Dosage: at bedtime
     Route: 048
  2. ONFI [Suspect]
     Indication: DYSPNOEA
     Dosage: at bedtime
     Route: 048

REACTIONS (8)
  - Depression [None]
  - Feeling abnormal [None]
  - Drug ineffective [None]
  - Somatoform disorder [None]
  - Dyspnoea [None]
  - Drug dependence [None]
  - Drug tolerance increased [None]
  - Headache [None]
